FAERS Safety Report 18661702 (Version 2)
Quarter: 2021Q2

REPORT INFORMATION
  Report Type: Spontaneous
  Country: None (occurrence: US)
  Receive Date: 20201224
  Receipt Date: 20210514
  Transmission Date: 20210717
  Serious: Yes (Other)
  Sender: FDA-Public Use
  Company Number: US-GLAXOSMITHKLINE-US2020GSK255629

PATIENT
  Sex: Male

DRUGS (2)
  1. RANITIDINE. [Suspect]
     Active Substance: RANITIDINE
     Indication: DYSPEPSIA
     Dosage: 150 MG
     Route: 065
     Dates: start: 200001, end: 202002
  2. RANITIDINE. [Suspect]
     Active Substance: RANITIDINE
     Indication: DYSPEPSIA
     Dosage: 150 MG
     Route: 065
     Dates: start: 200001, end: 202002

REACTIONS (3)
  - Hepatic cancer [Unknown]
  - Colorectal cancer [Unknown]
  - Lung neoplasm malignant [Unknown]
